FAERS Safety Report 22260863 (Version 1)
Quarter: 2023Q2

REPORT INFORMATION
  Report Type: Report from Study
  Country: JP (occurrence: JP)
  Receive Date: 20230427
  Receipt Date: 20230427
  Transmission Date: 20230721
  Serious: Yes (Hospitalization, Other)
  Sender: FDA-Public Use
  Company Number: JP-ONO-2023JP010086

PATIENT
  Age: 66 Year
  Sex: Male
  Weight: 68 kg

DRUGS (4)
  1. BRAFTOVI [Suspect]
     Active Substance: ENCORAFENIB
     Indication: Rectal cancer
     Dosage: 300 MG, EVERYDAY
     Route: 048
     Dates: start: 20220324, end: 20230105
  2. CETUXIMAB [Concomitant]
     Active Substance: CETUXIMAB
     Indication: Rectal cancer
     Dosage: 500 MG/M2
     Route: 065
     Dates: start: 20220324, end: 20220324
  3. CETUXIMAB [Concomitant]
     Active Substance: CETUXIMAB
     Dosage: 250 MG/M2
     Route: 065
     Dates: start: 20220331, end: 20221020
  4. CETUXIMAB [Concomitant]
     Active Substance: CETUXIMAB
     Dosage: 500 MG/M2, Q2W
     Route: 065
     Dates: start: 20221027, end: 20221208

REACTIONS (1)
  - Diabetes mellitus [Recovering/Resolving]

NARRATIVE: CASE EVENT DATE: 20221208
